FAERS Safety Report 18955028 (Version 1)
Quarter: 2021Q1

REPORT INFORMATION
  Report Type: Spontaneous
  Country: CN (occurrence: CN)
  Receive Date: 20210301
  Receipt Date: 20210301
  Transmission Date: 20210420
  Serious: Yes (Death, Other)
  Sender: FDA-Public Use
  Company Number: CN-ASTRAZENECA-2021A093128

PATIENT
  Age: 70 Year
  Sex: Male
  Weight: 62 kg

DRUGS (1)
  1. IMFINZI [Suspect]
     Active Substance: DURVALUMAB
     Indication: NON-SMALL CELL LUNG CANCER
     Dosage: 620 MG/CYCLE
     Route: 042
     Dates: start: 20201230, end: 20210125

REACTIONS (6)
  - Death [Fatal]
  - White blood cell count decreased [Unknown]
  - Pain in extremity [Unknown]
  - Abdominal pain [Unknown]
  - Pyrexia [Unknown]
  - Skin exfoliation [Unknown]
